FAERS Safety Report 18102077 (Version 2)
Quarter: 2020Q4

REPORT INFORMATION
  Report Type: Report from Study
  Country: None (occurrence: US)
  Receive Date: 20200803
  Receipt Date: 20201012
  Transmission Date: 20210113
  Serious: Yes (Other)
  Sender: FDA-Public Use
  Company Number: US-ABBVIE-20K-163-3501426-00

PATIENT
  Sex: Female

DRUGS (1)
  1. HUMIRA [Suspect]
     Active Substance: ADALIMUMAB
     Indication: JUVENILE IDIOPATHIC ARTHRITIS
     Dosage: CITRATE FREE
     Route: 058

REACTIONS (12)
  - Skin induration [Recovered/Resolved]
  - Postoperative adhesion [Recovered/Resolved]
  - Cataract [Not Recovered/Not Resolved]
  - Deposit eye [Unknown]
  - Urticaria [Recovered/Resolved]
  - Optic neuritis [Not Recovered/Not Resolved]
  - Post procedural complication [Unknown]
  - Erythema [Recovered/Resolved]
  - Eye inflammation [Recovered/Resolved]
  - Arthropod bite [Recovered/Resolved]
  - Feeling hot [Recovered/Resolved]
  - Swelling [Recovered/Resolved]
